FAERS Safety Report 8555370-X (Version None)
Quarter: 2012Q3

REPORT INFORMATION
  Report Type: 
  Country: None (occurrence: None)
  Receive Date: 20120731
  Receipt Date: 20120330
  Transmission Date: 20120928
  Serious: No
  Sender: FDA-Public Use
  Company Number: US-ASTRAZENECA-2011SE27883

PATIENT
  Age: 59 Year
  Sex: Male

DRUGS (3)
  1. SEROQUEL XR [Suspect]
     Dosage: HALF IN THE MORNING AND HALF IN THE EVENING
     Route: 048
  2. SEROQUEL XR [Suspect]
     Indication: MAJOR DEPRESSION
     Route: 048
     Dates: start: 20090101, end: 20110501
  3. VICODIN [Concomitant]
     Indication: PAIN

REACTIONS (8)
  - DEPRESSED MOOD [None]
  - DRUG DOSE OMISSION [None]
  - FEELING ABNORMAL [None]
  - DEPRESSION [None]
  - MENTAL DISORDER [None]
  - WRONG TECHNIQUE IN DRUG USAGE PROCESS [None]
  - FEELING JITTERY [None]
  - DIZZINESS [None]
